FAERS Safety Report 14113872 (Version 8)
Quarter: 2018Q3

REPORT INFORMATION
  Report Type: Spontaneous
  Country: JP (occurrence: JP)
  Receive Date: 20171023
  Receipt Date: 20180910
  Transmission Date: 20181010
  Serious: Yes (Death, Hospitalization, Other)
  Sender: FDA-Public Use
  Company Number: JP-BRISTOL-MYERS SQUIBB COMPANY-BMS-2017-094413

PATIENT
  Age: 58 Year
  Sex: Male

DRUGS (1)
  1. OPDIVO [Suspect]
     Active Substance: NIVOLUMAB
     Indication: NON-SMALL CELL LUNG CANCER
     Dosage: 160 MG, UNK
     Route: 041
     Dates: start: 20160415, end: 20160502

REACTIONS (6)
  - Dysphagia [Not Recovered/Not Resolved]
  - Haematuria [Unknown]
  - Malignant neoplasm progression [Fatal]
  - Aspiration [Recovered/Resolved]
  - Prescribed underdose [Unknown]
  - Ileus [Unknown]

NARRATIVE: CASE EVENT DATE: 20160415
